FAERS Safety Report 9560027 (Version 2)
Quarter: 2013Q4

REPORT INFORMATION
  Report Type: Spontaneous
  Country: US (occurrence: US)
  Receive Date: 20130927
  Receipt Date: 20131017
  Transmission Date: 20140711
  Serious: No
  Sender: FDA-Public Use
  Company Number: US-PFIZER INC-2013276134

PATIENT
  Age: 66 Year
  Sex: Female
  Weight: 132.43 kg

DRUGS (3)
  1. NEURONTIN [Suspect]
     Dosage: 600 MG, 2X/DAY
  2. NEURONTIN [Suspect]
     Dosage: 300 MG, 2X/DAY
  3. LYRICA [Suspect]
     Indication: DIABETIC NEUROPATHY
     Dosage: 75 MG, UNK
     Route: 048

REACTIONS (2)
  - Fall [Unknown]
  - Confusional state [Unknown]
